FAERS Safety Report 4788544-4 (Version None)
Quarter: 2005Q4

REPORT INFORMATION
  Report Type: 
  Country: None (occurrence: None)
  Receive Date: 20051005
  Receipt Date: 20050824
  Transmission Date: 20060501
  Serious: Yes (Other)
  Sender: FDA-Public Use
  Company Number: US-MERCK-0508USA04027

PATIENT
  Age: 64 Year
  Sex: Male
  Weight: 96 kg

DRUGS (4)
  1. ZOCOR [Suspect]
     Indication: BLOOD CHOLESTEROL INCREASED
     Route: 048
     Dates: start: 19980101
  2. TOPROL-XL [Concomitant]
     Route: 065
  3. ALTACE [Concomitant]
     Route: 065
  4. ASPIRIN [Concomitant]
     Route: 065

REACTIONS (2)
  - ARRHYTHMIA [None]
  - RASH ERYTHEMATOUS [None]
